FAERS Safety Report 18949535 (Version 1)
Quarter: 2021Q1

REPORT INFORMATION
  Report Type: Spontaneous
  Country: US (occurrence: US)
  Receive Date: 20210227
  Receipt Date: 20210227
  Transmission Date: 20210420
  Serious: No
  Sender: FDA-Public Use
  Company Number: US-ROCHE-2594193

PATIENT
  Sex: Female

DRUGS (15)
  1. ALBUTEROL SULFATE. [Concomitant]
     Active Substance: ALBUTEROL SULFATE
  2. BREO ELLIPTA [Concomitant]
     Active Substance: FLUTICASONE FUROATE\VILANTEROL TRIFENATATE
  3. DILTIAZEM HCL [Concomitant]
     Active Substance: DILTIAZEM HYDROCHLORIDE
  4. PROVENTIL HFA [Concomitant]
     Active Substance: ALBUTEROL SULFATE
  5. ASPIRIN. [Concomitant]
     Active Substance: ASPIRIN
  6. LEVOTHYROXINE SODIUM. [Concomitant]
     Active Substance: LEVOTHYROXINE SODIUM
  7. OXYCODONE HYDROCHLORIDE. [Concomitant]
     Active Substance: OXYCODONE HYDROCHLORIDE
  8. GLIMEPIRIDE. [Concomitant]
     Active Substance: GLIMEPIRIDE
  9. MONTELUKAST SODIUM. [Concomitant]
     Active Substance: MONTELUKAST SODIUM
  10. XOLAIR [Suspect]
     Active Substance: OMALIZUMAB
     Indication: PULMONARY HYPERTENSION
     Route: 065
  11. SPIRIVA RESPIMAT [Concomitant]
     Active Substance: TIOTROPIUM BROMIDE
  12. LASIX [Concomitant]
     Active Substance: FUROSEMIDE
  13. PLAVIX [Concomitant]
     Active Substance: CLOPIDOGREL BISULFATE
  14. POTASSIUM [Concomitant]
     Active Substance: POTASSIUM
  15. PRAVASTATIN SODIUM. [Concomitant]
     Active Substance: PRAVASTATIN SODIUM

REACTIONS (3)
  - Off label use [Unknown]
  - No adverse event [Unknown]
  - Intentional product use issue [Unknown]
